FAERS Safety Report 5099719-1 (Version None)
Quarter: 2006Q3

REPORT INFORMATION
  Report Type: 
  Country: None (occurrence: None)
  Receive Date: 20060908
  Receipt Date: 20060428
  Transmission Date: 20061208
  Serious: Yes (Other)
  Sender: FDA-Public Use
  Company Number: J200601219

PATIENT
  Age: 60 Year
  Sex: Male

DRUGS (6)
  1. SAWACILLIN [Suspect]
     Dosage: 250MG THREE TIMES PER DAY
     Route: 048
     Dates: start: 20050402, end: 20050402
  2. VOLTAREN [Suspect]
     Dosage: 25MG THREE TIMES PER DAY
     Route: 048
     Dates: start: 20050402, end: 20050402
  3. POLARAMINE [Suspect]
     Dosage: .2G THREE TIMES PER DAY
     Route: 048
     Dates: start: 20050402, end: 20050402
  4. CODEINE PHOSPHATE [Concomitant]
     Dosage: .5G THREE TIMES PER DAY
     Route: 048
     Dates: start: 20050402, end: 20050402
  5. HUSTAGIN [Concomitant]
     Dosage: 1.4G PER DAY
     Route: 048
     Dates: start: 20050402, end: 20050402
  6. MAGNESIUM SULFATE [Concomitant]
     Dosage: 1G PER DAY
     Dates: start: 20050402, end: 20050402

REACTIONS (12)
  - ANAPHYLACTOID REACTION [None]
  - COUGH [None]
  - DYSPNOEA [None]
  - GENERALISED ERYTHEMA [None]
  - MALAISE [None]
  - OXYGEN SATURATION DECREASED [None]
  - PHARYNGEAL ERYTHEMA [None]
  - PHARYNGOLARYNGEAL PAIN [None]
  - PRURITUS [None]
  - RHINORRHOEA [None]
  - STRIDOR [None]
  - TREMOR [None]
